FAERS Safety Report 4333255-2 (Version None)
Quarter: 2004Q2

REPORT INFORMATION
  Report Type: 
  Country: None (occurrence: None)
  Receive Date: 20040401
  Receipt Date: 20040326
  Transmission Date: 20050107
  Serious: Yes (Hospitalization)
  Sender: FDA-Public Use
  Company Number: 2004UW06043

PATIENT
  Age: 87 Year
  Sex: Male

DRUGS (3)
  1. SEROQUEL [Suspect]
     Indication: ABNORMAL BEHAVIOUR
     Dates: start: 20040309
  2. SEROQUEL [Suspect]
     Indication: ABNORMAL BEHAVIOUR
     Dosage: 12.5 PO
     Route: 048
     Dates: start: 20040315
  3. ZOLOFT [Concomitant]

REACTIONS (2)
  - FALL [None]
  - SKIN LACERATION [None]
